FAERS Safety Report 4862239-0 (Version None)
Quarter: 2005Q4

REPORT INFORMATION
  Report Type: 
  Country: None (occurrence: None)
  Receive Date: 20051221
  Receipt Date: 20051212
  Transmission Date: 20060501
  Serious: Yes (Death)
  Sender: FDA-Public Use
  Company Number: US-NOVOPROD-249241

PATIENT
  Sex: Female
  Weight: 159 kg

DRUGS (3)
  1. NOVOSEVEN [Suspect]
     Indication: GASTROINTESTINAL HAEMORRHAGE
     Dosage: 7200 UG, SINGLE
     Route: 042
  2. NOVOSEVEN [Suspect]
     Dosage: 9600 UG, SINGLE
     Route: 042
  3. COUMADIN [Concomitant]

REACTIONS (1)
  - DRUG INEFFECTIVE [None]
